FAERS Safety Report 11751691 (Version 3)
Quarter: 2015Q4

REPORT INFORMATION
  Report Type: Report from Study
  Country: DK (occurrence: DK)
  Receive Date: 20151118
  Receipt Date: 20151208
  Transmission Date: 20160304
  Serious: Yes (Hospitalization)
  Sender: FDA-Public Use
  Company Number: PHHY2015DK149838

PATIENT
  Age: 46 Year
  Sex: Female

DRUGS (1)
  1. GILENYA [Suspect]
     Active Substance: FINGOLIMOD HYDROCHLORIDE
     Indication: RELAPSING-REMITTING MULTIPLE SCLEROSIS
     Dosage: 0.5 MG, QD
     Route: 048
     Dates: start: 20130604, end: 20151111

REACTIONS (1)
  - Malignant melanoma [Not Recovered/Not Resolved]

NARRATIVE: CASE EVENT DATE: 20150925
